FAERS Safety Report 24411712 (Version 1)
Quarter: 2024Q4

REPORT INFORMATION
  Report Type: Spontaneous
  Country: VN (occurrence: VN)
  Receive Date: 20241008
  Receipt Date: 20241008
  Transmission Date: 20250115
  Serious: Yes (Other)
  Sender: ROCHE
  Company Number: VN-ROCHE-10000099073

PATIENT
  Age: 70 Year

DRUGS (1)
  1. MABTHERA [Suspect]
     Active Substance: RITUXIMAB
     Indication: B-cell lymphoma
     Dosage: FREQUENCY: WEEKLY
     Route: 042
     Dates: start: 20241002

REACTIONS (2)
  - Anaphylactic shock [Unknown]
  - Off label use [Unknown]

NARRATIVE: CASE EVENT DATE: 20241002
